FAERS Safety Report 6505933-8 (Version None)
Quarter: 2009Q4

REPORT INFORMATION
  Report Type: 
  Country: None (occurrence: None)
  Receive Date: 20091218
  Receipt Date: 20091211
  Transmission Date: 20100525
  Serious: Yes (Hospitalization)
  Sender: FDA-Public Use
  Company Number: JP-MERCK-0912USA01994

PATIENT
  Age: 75 Year
  Sex: Female

DRUGS (8)
  1. FOSAMAX [Suspect]
     Indication: OSTEOPOROSIS
     Route: 048
     Dates: start: 20091125, end: 20091207
  2. ONEALFA [Suspect]
     Indication: OSTEOPOROSIS
     Route: 048
     Dates: start: 20091125, end: 20091207
  3. CELECOX [Suspect]
     Indication: ANALGESIC THERAPY
     Route: 048
     Dates: start: 20091125, end: 20091207
  4. ALKIXA (ALDIOXA) [Suspect]
     Indication: GASTRITIS
     Route: 048
     Dates: start: 20091125, end: 20091207
  5. BLOPRESS [Concomitant]
     Indication: HYPERTENSION
     Route: 048
  6. HIBON [Concomitant]
     Indication: VITAMIN B2 DEFICIENCY
     Route: 048
  7. SPIRIVA [Concomitant]
     Indication: BRONCHITIS CHRONIC
     Route: 048
  8. MUCOSOLVAN L [Concomitant]
     Indication: BRONCHITIS CHRONIC
     Route: 048

REACTIONS (1)
  - ERYTHEMA MULTIFORME [None]
